FAERS Safety Report 6411512-3 (Version None)
Quarter: 2009Q4

REPORT INFORMATION
  Report Type: 
  Country: None (occurrence: None)
  Receive Date: 20091020
  Receipt Date: 20091013
  Transmission Date: 20100525
  Serious: Yes (Hospitalization)
  Sender: FDA-Public Use
  Company Number: 2009-195831-NL

PATIENT
  Age: 22 Year
  Sex: Female
  Weight: 54.4316 kg

DRUGS (3)
  1. NUVARING [Suspect]
     Indication: CONTRACEPTION
     Dosage: 1 DF;
     Dates: start: 20051001, end: 20060518
  2. ADVAIR DISKUS 100/50 [Concomitant]
  3. PROVENTIL-HFA [Concomitant]

REACTIONS (13)
  - COLITIS [None]
  - DEEP VEIN THROMBOSIS [None]
  - DIARRHOEA HAEMORRHAGIC [None]
  - EATING DISORDER [None]
  - FATIGUE [None]
  - HEADACHE [None]
  - LETHARGY [None]
  - OEDEMA PERIPHERAL [None]
  - PAIN IN EXTREMITY [None]
  - PHARYNGITIS [None]
  - UPPER RESPIRATORY TRACT INFECTION [None]
  - VISION BLURRED [None]
  - WEIGHT DECREASED [None]
